FAERS Safety Report 11074178 (Version 1)
Quarter: 2015Q2

REPORT INFORMATION
  Report Type: Spontaneous
  Country: US (occurrence: None)
  Receive Date: 20150428
  Receipt Date: 20150428
  Transmission Date: 20150821
  Serious: Yes (Other)
  Sender: FDA-Public Use
  Company Number: None

PATIENT
  Age: 34 Year
  Sex: Female

DRUGS (4)
  1. HUMIRA [Suspect]
     Active Substance: ADALIMUMAB
     Indication: RHEUMATOID ARTHRITIS
     Dosage: 40MG  SQ EVERY 14 DAYS
     Route: 058
     Dates: start: 20150324, end: 20150410
  2. HCTZ [Concomitant]
     Active Substance: HYDROCHLOROTHIAZIDE
  3. METOPROLOL ER [Concomitant]
     Active Substance: METOPROLOL SUCCINATE
  4. HYDROCODONE-APAP [Concomitant]
     Active Substance: ACETAMINOPHEN\HYDROCODONE

REACTIONS (5)
  - Rebound effect [None]
  - Rheumatoid arthritis [None]
  - Psoriasis [None]
  - Oedema peripheral [None]
  - Disease recurrence [None]

NARRATIVE: CASE EVENT DATE: 20150410
